FAERS Safety Report 8052854 (Version 5)
Quarter: 2014Q3

REPORT INFORMATION
  Report Type: Spontaneous
  Country: US (occurrence: US)
  Receive Date: 20110725
  Receipt Date: 20140718
  Transmission Date: 20150326
  Serious: Yes (Hospitalization)
  Sender: FDA-Public Use
  Company Number: US-GLAXOSMITHKLINE-A0937845A

PATIENT
  Sex: Female
  Weight: 93.2 kg

DRUGS (7)
  1. ADVAIR HFA [Concomitant]
     Active Substance: FLUTICASONE PROPIONATE\SALMETEROL XINAFOATE
  2. ALBUTEROL. [Concomitant]
     Active Substance: ALBUTEROL
  3. AVANDIA [Suspect]
     Active Substance: ROSIGLITAZONE MALEATE
     Indication: DIABETES MELLITUS
     Dosage: 4MG TWICE PER DAY
     Route: 048
     Dates: start: 200408, end: 200704
  4. GLYBURIDE. [Concomitant]
     Active Substance: GLYBURIDE
  5. ROSIGLITAZONE MALEATE. [Suspect]
     Active Substance: ROSIGLITAZONE MALEATE
     Indication: DIABETES MELLITUS
     Dosage: 4MG PER DAY
     Route: 048
     Dates: start: 20040831, end: 20051003
  6. COZAR [Concomitant]
  7. ATENOLOL. [Concomitant]
     Active Substance: ATENOLOL

REACTIONS (3)
  - Hemiparesis [Unknown]
  - Cerebral infarction [Unknown]
  - Ischaemic stroke [Not Recovered/Not Resolved]
